FAERS Safety Report 12341012 (Version 1)
Quarter: 2016Q2

REPORT INFORMATION
  Report Type: Spontaneous
  Country: US (occurrence: None)
  Receive Date: 20160505
  Receipt Date: 20160505
  Transmission Date: 20160815
  Serious: Yes (Hospitalization)
  Sender: FDA-Public Use
  Company Number: None

PATIENT
  Age: 50 Year
  Sex: Male
  Weight: 93.5 kg

DRUGS (2)
  1. CHLORTHALIDONE. [Suspect]
     Active Substance: CHLORTHALIDONE
     Indication: HYPERTENSION
     Route: 048
     Dates: start: 20150429, end: 20160307
  2. CARBAMAZEPINE. [Suspect]
     Active Substance: CARBAMAZEPINE
     Indication: DEPRESSION
     Route: 048
     Dates: start: 20100219, end: 20160307

REACTIONS (10)
  - Hyponatraemia [None]
  - Pain [None]
  - Rectal haemorrhage [None]
  - Condition aggravated [None]
  - Hypophagia [None]
  - Syncope [None]
  - Hypovolaemia [None]
  - Urinary incontinence [None]
  - Tooth extraction [None]
  - Fall [None]

NARRATIVE: CASE EVENT DATE: 20160303
